FAERS Safety Report 15440687 (Version 1)
Quarter: 2018Q3

REPORT INFORMATION
  Report Type: Spontaneous
  Country: PE (occurrence: PE)
  Receive Date: 20180925
  Receipt Date: 20180925
  Transmission Date: 20181010
  Serious: Yes (Disabling, Other)
  Sender: FDA-Public Use
  Company Number: None

PATIENT
  Age: 74 Year
  Sex: Male
  Weight: 60 kg

DRUGS (1)
  1. PONARIS (LEVOFLOXACIN) [Suspect]
     Active Substance: LEVOFLOXACIN
     Indication: PHARYNGITIS
     Dosage: ?          QUANTITY:1 TABLET(S);?
     Route: 048
     Dates: start: 20180824, end: 20180830

REACTIONS (7)
  - Decreased appetite [None]
  - Fatigue [None]
  - Insomnia [None]
  - Hypersomnia [None]
  - Pain in extremity [None]
  - Feeling cold [None]
  - Haemoglobin decreased [None]

NARRATIVE: CASE EVENT DATE: 20180831
